FAERS Safety Report 8133707-3 (Version None)
Quarter: 2012Q1

REPORT INFORMATION
  Report Type: 
  Country: None (occurrence: None)
  Receive Date: 20120213
  Receipt Date: 20120203
  Transmission Date: 20120608
  Serious: Yes (Hospitalization)
  Sender: FDA-Public Use
  Company Number: US-ABBOTT-12P-163-0892863-00

PATIENT
  Sex: Male
  Weight: 119.4 kg

DRUGS (1)
  1. HUMIRA [Suspect]
     Indication: RHEUMATOID ARTHRITIS
     Route: 058
     Dates: start: 20110414, end: 20111220

REACTIONS (4)
  - URTICARIA [None]
  - RASH [None]
  - CHEST PAIN [None]
  - JOINT SWELLING [None]
